FAERS Safety Report 7678139-7 (Version None)
Quarter: 2011Q3

REPORT INFORMATION
  Report Type: 
  Country: None (occurrence: None)
  Receive Date: 20110811
  Receipt Date: 20110727
  Transmission Date: 20111222
  Serious: Yes (Other)
  Sender: FDA-Public Use
  Company Number: GB-JNJFOC-20110801053

PATIENT

DRUGS (4)
  1. ACETAMINOPHEN AND CODEINE PHOSPHATE [Suspect]
     Route: 048
  2. ACETAMINOPHEN AND CODEINE PHOSPHATE [Suspect]
     Indication: OSTEOARTHRITIS
     Dosage: PARACETAMOL 500 MG/ CODEINE 8MG
     Route: 048
  3. ACETAMINOPHEN W/ CODEINE [Suspect]
     Dosage: 30 MG/500MG 2 TABLETS FOUR TIMES DAILY
     Route: 048
  4. ACETAMINOPHEN W/ CODEINE [Suspect]
     Indication: OSTEOARTHRITIS
     Dosage: 15 MG/500MG 2 TABLETS FOUR TIMES DAILY
     Route: 048

REACTIONS (1)
  - ARTHRITIS [None]
